FAERS Safety Report 19037285 (Version 1)
Quarter: 2021Q1

REPORT INFORMATION
  Report Type: Spontaneous
  Country: TH (occurrence: TH)
  Receive Date: 20210322
  Receipt Date: 20210322
  Transmission Date: 20210420
  Serious: Yes (Other)
  Sender: FDA-Public Use
  Company Number: TH-EPICPHARMA-TH-2021EPCLIT00272

PATIENT
  Age: 78 Year
  Sex: Male

DRUGS (8)
  1. LEUCOVORIN CALCIUM. [Suspect]
     Active Substance: LEUCOVORIN CALCIUM
     Indication: COLORECTAL CANCER RECURRENT
     Route: 065
  2. OXALIPLATIN. [Suspect]
     Active Substance: OXALIPLATIN
     Indication: COLORECTAL CANCER RECURRENT
     Route: 065
  3. 5 FLUORO URACIL [Suspect]
     Active Substance: FLUOROURACIL
     Route: 042
  4. 5 FLUORO URACIL [Suspect]
     Active Substance: FLUOROURACIL
     Dosage: FULL DOSE
     Route: 065
  5. 5 FLUORO URACIL [Suspect]
     Active Substance: FLUOROURACIL
     Indication: COLORECTAL CANCER RECURRENT
     Route: 040
  6. 5 FLUORO URACIL [Suspect]
     Active Substance: FLUOROURACIL
     Dosage: BOLUS 400/CONTINUOUS 600 MG/M2
     Route: 040
  7. OXALIPLATIN. [Suspect]
     Active Substance: OXALIPLATIN
     Route: 065
  8. LACTULOSE. [Interacting]
     Active Substance: LACTULOSE
     Indication: PRODUCT USED FOR UNKNOWN INDICATION
     Route: 065

REACTIONS (3)
  - Lactic acidosis [Recovering/Resolving]
  - Encephalopathy [Recovering/Resolving]
  - Acute kidney injury [Recovering/Resolving]
